FAERS Safety Report 11619526 (Version 1)
Quarter: 2015Q4

REPORT INFORMATION
  Report Type: Spontaneous
  Country: GB (occurrence: GB)
  Receive Date: 20151012
  Receipt Date: 20151012
  Transmission Date: 20160304
  Serious: Yes (Other)
  Sender: FDA-Public Use
  Company Number: GB-GLAXOSMITHKLINE-GB2015142959

PATIENT
  Age: 65 Year
  Sex: Female
  Weight: 89 kg

DRUGS (12)
  1. ORLISTAT [Suspect]
     Active Substance: ORLISTAT
     Indication: OBESITY
     Route: 048
     Dates: end: 20150826
  2. LINAGLIPTIN [Concomitant]
     Active Substance: LINAGLIPTIN
  3. SALBUTAMOL [Concomitant]
     Active Substance: ALBUTEROL
     Route: 055
  4. CARBOCYSTEINE [Concomitant]
     Active Substance: CARBOCYSTEINE
  5. ESCITALOPRAM [Concomitant]
     Active Substance: ESCITALOPRAM OXALATE
  6. TIOTROPIUM [Concomitant]
     Active Substance: TIOTROPIUM
  7. AMITRIPTYLINE [Concomitant]
     Active Substance: AMITRIPTYLINE
  8. ATORVASTATIN [Concomitant]
     Active Substance: ATORVASTATIN
  9. OMEPRAZOLE. [Concomitant]
     Active Substance: OMEPRAZOLE
  10. CLONIDINE. [Concomitant]
     Active Substance: CLONIDINE
  11. GABAPENTIN. [Concomitant]
     Active Substance: GABAPENTIN
  12. SYMBICORT [Concomitant]
     Active Substance: BUDESONIDE\FORMOTEROL FUMARATE DIHYDRATE

REACTIONS (2)
  - Acute kidney injury [Not Recovered/Not Resolved]
  - Renal impairment [Not Recovered/Not Resolved]

NARRATIVE: CASE EVENT DATE: 2014
